FAERS Safety Report 6637383-8 (Version None)
Quarter: 2010Q1

REPORT INFORMATION
  Report Type: 
  Country: None (occurrence: None)
  Receive Date: 20100311
  Receipt Date: 20100224
  Transmission Date: 20100710
  Serious: Yes (Hospitalization)
  Sender: FDA-Public Use
  Company Number: THQ2010A00203

PATIENT
  Age: 60 Year
  Sex: Female

DRUGS (6)
  1. ACTOS [Suspect]
     Indication: TYPE 2 DIABETES MELLITUS
     Dosage: 15 MG PER ORAL
     Route: 048
     Dates: start: 20100101
  2. DIAMICRON MR (GLICLAZIDE) [Concomitant]
  3. GLUCOBAY [Concomitant]
  4. SIMVASTATIN [Concomitant]
  5. ALLOPURINOL [Concomitant]
  6. ZESTRIL [Concomitant]

REACTIONS (3)
  - LACUNAR INFARCTION [None]
  - VERTIGO [None]
  - VOMITING [None]
